FAERS Safety Report 18441091 (Version 2)
Quarter: 2020Q4

REPORT INFORMATION
  Report Type: Spontaneous
  Country: GB (occurrence: GB)
  Receive Date: 20201029
  Receipt Date: 20201120
  Transmission Date: 20210114
  Serious: Yes (Death)
  Sender: FDA-Public Use
  Company Number: GB-PFIZER INC-2020418460

PATIENT
  Age: 54 Year
  Sex: Male
  Weight: 79 kg

DRUGS (6)
  1. CLOZARIL [Suspect]
     Active Substance: CLOZAPINE
     Indication: SCHIZOPHRENIA
     Dosage: 700MG, DAILY (150 MG + 200 MG + 350 MG )
     Route: 048
     Dates: start: 20010701
  2. ATROPINE. [Suspect]
     Active Substance: ATROPINE
     Dosage: UNK, 2X/DAY
  3. CLONAZEPAM. [Suspect]
     Active Substance: CLONAZEPAM
     Dosage: 2 MG, 1X/DAY (2 MILLIGRAM, QD)
     Route: 048
  4. SERTRALINE HCL [Suspect]
     Active Substance: SERTRALINE HYDROCHLORIDE
     Dosage: 100 MG
     Route: 048
  5. CLONAZEPAM. [Suspect]
     Active Substance: CLONAZEPAM
     Dosage: 1 MG, 2X/DAY (1 MG, BID)
     Route: 048
  6. RISPERIDONE. [Suspect]
     Active Substance: RISPERIDONE
     Dosage: 2 MG, 1X/DAY (2 MILLIGRAM, NOCTE)
     Route: 048

REACTIONS (2)
  - Salivary hypersecretion [Unknown]
  - Death [Fatal]

NARRATIVE: CASE EVENT DATE: 20200921
